FAERS Safety Report 8271600-6 (Version None)
Quarter: 2012Q1

REPORT INFORMATION
  Report Type: 
  Country: None (occurrence: None)
  Receive Date: 20120327
  Receipt Date: 20100315
  Transmission Date: 20120608
  Serious: Yes (Other)
  Sender: FDA-Public Use
  Company Number: PHEH2009US17842

PATIENT
  Age: 65 Year
  Sex: Male

DRUGS (5)
  1. GLEEVEC [Suspect]
     Indication: CHRONIC MYELOID LEUKAEMIA
     Dosage: 400 MG, QD, ORAL ; 800 MG, QD
     Route: 048
     Dates: start: 20090101
  2. GLEEVEC [Suspect]
     Indication: CHRONIC MYELOID LEUKAEMIA
     Dosage: 400 MG, QD, ORAL ; 800 MG, QD
     Route: 048
     Dates: end: 20091107
  3. TIZANIDINE HCL [Concomitant]
  4. HYDROCOODONE (HYDROCODONE) [Concomitant]
  5. OXYCODONE HCL [Concomitant]

REACTIONS (3)
  - CHRONIC MYELOID LEUKAEMIA [None]
  - DRUG INEFFECTIVE [None]
  - PLATELET COUNT ABNORMAL [None]
